FAERS Safety Report 5921404-1 (Version None)
Quarter: 2008Q4

REPORT INFORMATION
  Report Type: 
  Country: None (occurrence: None)
  Receive Date: 20081014
  Receipt Date: 20080926
  Transmission Date: 20090506
  Serious: Yes (Congenital Anomaly)
  Sender: FDA-Public Use
  Company Number: 8037370

PATIENT

DRUGS (1)
  1. METHYLPHENIDATE HCL [Suspect]
     Dosage: TRP
     Route: 064

REACTIONS (3)
  - CONGENITAL ANOMALY [None]
  - HEART DISEASE CONGENITAL [None]
  - MATERNAL DRUGS AFFECTING FOETUS [None]
